FAERS Safety Report 11288366 (Version 1)
Quarter: 2015Q3

REPORT INFORMATION
  Report Type: Spontaneous
  Country: US (occurrence: None)
  Receive Date: 20150720
  Receipt Date: 20150720
  Transmission Date: 20151125
  Serious: Yes (Hospitalization)
  Sender: FDA-Public Use
  Company Number: None

PATIENT
  Age: 66 Year
  Sex: Male

DRUGS (1)
  1. ATORVASTATIN [Suspect]
     Active Substance: ATORVASTATIN
     Indication: HYPERLIPIDAEMIA
     Route: 048
     Dates: start: 20120420, end: 20120514

REACTIONS (4)
  - Oedema peripheral [None]
  - Muscle spasms [None]
  - Chest pain [None]
  - Rhabdomyolysis [None]

NARRATIVE: CASE EVENT DATE: 20120514
